FAERS Safety Report 9162717 (Version 2)
Quarter: 2013Q3

REPORT INFORMATION
  Report Type: Report from Study
  Country: DE (occurrence: DE)
  Receive Date: 20130314
  Receipt Date: 20130708
  Transmission Date: 20140515
  Serious: Yes (Other)
  Sender: FDA-Public Use
  Company Number: PHHY2013DE024771

PATIENT
  Sex: Female

DRUGS (4)
  1. FTY 720 [Suspect]
     Indication: MULTIPLE SCLEROSIS
     Dosage: 0.5 MG, QD
     Route: 048
     Dates: start: 20121218
  2. SERTRALINE [Concomitant]
     Dosage: 100 MG, QD
     Dates: start: 20121113
  3. TRIMIPRAMINE [Concomitant]
     Dates: start: 20120705
  4. VIGANTOLETTEN [Concomitant]
     Dosage: 1 DF, QD
     Dates: start: 20130114

REACTIONS (1)
  - Dysuria [Recovered/Resolved]
